FAERS Safety Report 24725929 (Version 2)
Quarter: 2024Q4

REPORT INFORMATION
  Report Type: Spontaneous
  Country: CZ (occurrence: CZ)
  Receive Date: 20241212
  Receipt Date: 20241219
  Transmission Date: 20250115
  Serious: Yes (Hospitalization, Other)
  Sender: AUROBINDO
  Company Number: CZ-RECORDATI-2024009131

PATIENT
  Age: 70 Year
  Sex: Male

DRUGS (1)
  1. METOPROLOL [Suspect]
     Active Substance: METOPROLOL
     Indication: Cardiac failure acute
     Dosage: UNK
     Route: 065

REACTIONS (2)
  - Cardiogenic shock [Recovering/Resolving]
  - Contraindicated product administered [Recovered/Resolved]
